FAERS Safety Report 5202595-7 (Version None)
Quarter: 2007Q1

REPORT INFORMATION
  Report Type: 
  Country: None (occurrence: None)
  Receive Date: 20070109
  Receipt Date: 20070103
  Transmission Date: 20070707
  Serious: Yes (Hospitalization, Other)
  Sender: FDA-Public Use
  Company Number: US-PFIZER INC-2006102669

PATIENT
  Sex: Female
  Weight: 61.7 kg

DRUGS (6)
  1. CELEBREX [Suspect]
     Indication: ARTHRITIS
     Route: 065
  2. NEURONTIN [Suspect]
     Indication: NEUROPATHY
     Route: 065
  3. SYNTHROID [Suspect]
     Indication: THYROIDECTOMY
     Dosage: TEXT:UNKNOWN-FREQ:UNKNOWN
     Route: 065
  4. CHOLESTEROL [Suspect]
     Indication: BLOOD CHOLESTEROL DECREASED
     Dosage: TEXT:UNKNOWN-FREQ:UNKNOWN
     Route: 065
  5. CALCIUM WITH VITAMIN D [Concomitant]
  6. CALCITRIOL [Concomitant]

REACTIONS (16)
  - ARTHRITIS [None]
  - BLOOD CHOLESTEROL DECREASED [None]
  - CONSTIPATION [None]
  - CONVULSION [None]
  - CRYING [None]
  - DEPRESSION [None]
  - DRUG HYPERSENSITIVITY [None]
  - DRUG INEFFECTIVE [None]
  - DRY MOUTH [None]
  - FEELING ABNORMAL [None]
  - GASTROOESOPHAGEAL REFLUX DISEASE [None]
  - HEADACHE [None]
  - HYPOCALCAEMIA [None]
  - LARYNGITIS [None]
  - THYROID CANCER [None]
  - VOMITING [None]
